FAERS Safety Report 10225034 (Version 2)
Quarter: 2014Q2

REPORT INFORMATION
  Report Type: Spontaneous
  Country: CZ (occurrence: CZ)
  Receive Date: 20140609
  Receipt Date: 20140613
  Transmission Date: 20141212
  Serious: Yes (Disabling)
  Sender: FDA-Public Use
  Company Number: PHHY2014CZ066824

PATIENT
  Age: 26 Year
  Sex: Male

DRUGS (13)
  1. SANDIMMUN [Suspect]
     Indication: EPIDERMOLYSIS BULLOSA
     Dosage: 300 MG,PER DAY
  2. SANDIMMUN [Suspect]
     Dosage: 200 MG, PER DAY
  3. SANDIMMUN [Suspect]
     Dosage: 300 PER DAY
  4. SANDIMMUN [Suspect]
     Dosage: 200 MG, PER DAY
  5. MEDROL [Suspect]
     Dosage: 16 MG, PER DAY
  6. MEDROL [Suspect]
     Dosage: 8 MG, PER DAY
  7. DELAGIL [Concomitant]
     Dosage: 125 MG, TWICE WEEKLY
  8. DELAGIL [Concomitant]
  9. PREDNISON [Concomitant]
     Indication: CROHN^S DISEASE
     Dosage: 60 MG, PER DAY
  10. SALOFALK//MESALAZINE [Concomitant]
     Indication: CROHN^S DISEASE
     Dosage: 1500 MG, PER DAY
  11. SORBIFER DURULES [Concomitant]
     Indication: CROHN^S DISEASE
     Dosage: 200 MG, PER DAY
  12. IMURAN [Concomitant]
     Indication: CROHN^S DISEASE
     Dosage: 100 MG, PER DAY
  13. PENTASA [Concomitant]
     Indication: CROHN^S DISEASE

REACTIONS (2)
  - Disease progression [Unknown]
  - Drug ineffective [Unknown]
